FAERS Safety Report 17037772 (Version 2)
Quarter: 2020Q1

REPORT INFORMATION
  Report Type: Spontaneous
  Country: DE (occurrence: DE)
  Receive Date: 20191115
  Receipt Date: 20200121
  Transmission Date: 20200409
  Serious: Yes (Other)
  Sender: FDA-Public Use
  Company Number: DE-SA-2019SA314006

PATIENT
  Age: 80 Year
  Sex: Male
  Weight: 72 kg

DRUGS (5)
  1. PANTOPRAZOLE [Concomitant]
     Active Substance: PANTOPRAZOLE
     Dosage: 20 MG
     Route: 048
     Dates: start: 20191104, end: 20191219
  2. JEVTANA [Suspect]
     Active Substance: CABAZITAXEL
     Dosage: 20 UNK, UNK
     Route: 065
  3. JEVTANA [Suspect]
     Active Substance: CABAZITAXEL
     Dosage: 20 MG, BIW
     Route: 042
     Dates: start: 20191104, end: 20191219
  4. NEULASTA [Concomitant]
     Active Substance: PEGFILGRASTIM
     Dosage: UNK
     Route: 058
     Dates: start: 20191104, end: 20191219
  5. PREDNISOLONE. [Concomitant]
     Active Substance: PREDNISOLONE
     Dosage: 5 MG
     Route: 048
     Dates: start: 20191104, end: 20191219

REACTIONS (3)
  - Erythema [Recovered/Resolved]
  - Vertigo [Recovered/Resolved]
  - Circulatory collapse [Recovered/Resolved]

NARRATIVE: CASE EVENT DATE: 20191104
